FAERS Safety Report 24786752 (Version 1)
Quarter: 2024Q4

REPORT INFORMATION
  Report Type: Spontaneous
  Country: PR (occurrence: PR)
  Receive Date: 20241230
  Receipt Date: 20241230
  Transmission Date: 20250115
  Serious: Yes (Hospitalization, Other)
  Sender: BIOGEN
  Company Number: PR-BIOGEN-2024BI01295108

PATIENT
  Age: 49 Year
  Sex: Female
  Weight: 124 kg

DRUGS (1)
  1. TYSABRI [Suspect]
     Active Substance: NATALIZUMAB
     Indication: Multiple sclerosis
     Route: 050
     Dates: start: 201207

REACTIONS (3)
  - Nodule [Recovered/Resolved]
  - Abscess limb [Recovered/Resolved]
  - Seizure [Not Recovered/Not Resolved]

NARRATIVE: CASE EVENT DATE: 20241201
